FAERS Safety Report 16301098 (Version 2)
Quarter: 2019Q2

REPORT INFORMATION
  Report Type: Spontaneous
  Country: FR (occurrence: FR)
  Receive Date: 20190510
  Receipt Date: 20190524
  Transmission Date: 20190711
  Serious: Yes (Other)
  Sender: FDA-Public Use
  Company Number: FR-AUROBINDO-AUR-APL-2019-024789

PATIENT

DRUGS (4)
  1. TENOFOVIR DISOPROXIL FILM COATED TABLETS [Suspect]
     Active Substance: TENOFOVIR DISOPROXIL
     Dosage: UNK
     Route: 065
     Dates: start: 20161229, end: 20190302
  2. TENOFOVIR DISOPROXIL FILM COATED TABLETS [Suspect]
     Active Substance: TENOFOVIR DISOPROXIL
     Indication: PROPHYLAXIS AGAINST HIV INFECTION
     Dosage: UNK, TOOK 2 TABLETS OVER THE COURSE OF THE LAST MONTH
     Route: 048
     Dates: start: 20161229, end: 20190302
  3. EMTRIVA [Suspect]
     Active Substance: EMTRICITABINE
     Indication: PROPHYLAXIS AGAINST HIV INFECTION
     Dosage: UNK, TOOK 2 TABLETS OVER THE COURSE OF THE LAST MONTH
     Route: 048
  4. EMTRIVA [Suspect]
     Active Substance: EMTRICITABINE
     Dosage: UNK, A LA DEMANDE (PRISE DE 2CP AU COURS DU DERNIER MOIS)
     Route: 048
     Dates: start: 20161229, end: 20190302

REACTIONS (1)
  - Acute HIV infection [Not Recovered/Not Resolved]

NARRATIVE: CASE EVENT DATE: 201903
